FAERS Safety Report 20201826 (Version 1)
Quarter: 2021Q4

REPORT INFORMATION
  Report Type: Spontaneous
  Country: IT (occurrence: IT)
  Receive Date: 20211217
  Receipt Date: 20211217
  Transmission Date: 20220303
  Serious: Yes (Other)
  Sender: FDA-Public Use
  Company Number: None

PATIENT
  Age: 73 Year
  Sex: Male

DRUGS (6)
  1. METHOTREXATE [Suspect]
     Active Substance: METHOTREXATE
     Route: 065
  2. COMIRNATY [Suspect]
     Active Substance: TOZINAMERAN
     Indication: COVID-19 immunisation
     Route: 030
     Dates: start: 20210429, end: 20210429
  3. BISOPROLOL [Concomitant]
     Active Substance: BISOPROLOL
  4. INSULIN ASPART [Concomitant]
     Active Substance: INSULIN ASPART
  5. EDOXABAN [Concomitant]
     Active Substance: EDOXABAN
  6. TAPAZOLE [Concomitant]
     Active Substance: METHIMAZOLE

REACTIONS (2)
  - Erythema multiforme [Unknown]
  - Toxic skin eruption [Unknown]

NARRATIVE: CASE EVENT DATE: 20210502
